FAERS Safety Report 6524813-5 (Version None)
Quarter: 2009Q4

REPORT INFORMATION
  Report Type: 
  Country: None (occurrence: None)
  Receive Date: 20091214
  Receipt Date: 20090622
  Transmission Date: 20100525
  Serious: Yes (Hospitalization)
  Sender: FDA-Public Use
  Company Number: 640031

PATIENT
  Age: 41 Year
  Sex: Female

DRUGS (2)
  1. PEGASYS [Suspect]
     Indication: HEPATITIS C
     Dates: start: 20090501
  2. RIBAVIRIN [Suspect]
     Indication: HEPATITIS C
     Dates: start: 20090501

REACTIONS (2)
  - COMA [None]
  - OVERDOSE [None]
